FAERS Safety Report 4690823-6 (Version None)
Quarter: 2005Q2

REPORT INFORMATION
  Report Type: 
  Country: None (occurrence: None)
  Receive Date: 20050610
  Receipt Date: 20050527
  Transmission Date: 20051028
  Serious: Yes (Death)
  Sender: FDA-Public Use
  Company Number: HQWYE191122APR05

PATIENT
  Age: 80 Year
  Sex: Female
  Weight: 52.21 kg

DRUGS (17)
  1. NEUMEGA [Suspect]
     Indication: THROMBOCYTOPENIA
     Dosage: 5 MG EACH, 2 DOSES WERE GIVEN, SUBCUTANEOUS
     Route: 058
     Dates: start: 20050407, end: 20050408
  2. SYNTHROID [Concomitant]
  3. PROPAFENONE HCL [Concomitant]
  4. DIGOXIN [Concomitant]
  5. PROTONIX [Concomitant]
  6. PAXIL [Concomitant]
  7. LORAZEPAM [Concomitant]
  8. SEPTRA [Concomitant]
  9. COMBIVENT [Concomitant]
  10. NYSTATIN [Concomitant]
  11. TIAZAC [Concomitant]
  12. ARANESP [Concomitant]
  13. NEUPOGEN [Concomitant]
  14. CARBOPLATIN [Concomitant]
  15. GEMZAR [Concomitant]
  16. DECADRON [Concomitant]
  17. ANZEMET (DOLASETRON MESILATE) [Concomitant]

REACTIONS (22)
  - ALANINE AMINOTRANSFERASE INCREASED [None]
  - ANGIOPATHY [None]
  - AORTIC DILATATION [None]
  - ASPARTATE AMINOTRANSFERASE INCREASED [None]
  - ATHEROSCLEROSIS [None]
  - BLOOD ALKALINE PHOSPHATASE INCREASED [None]
  - BLOOD CREATININE INCREASED [None]
  - BLOOD GLUCOSE INCREASED [None]
  - BLOOD POTASSIUM INCREASED [None]
  - BLOOD SODIUM DECREASED [None]
  - BRAIN NATRIURETIC PEPTIDE INCREASED [None]
  - CARBON DIOXIDE DECREASED [None]
  - CARDIAC FAILURE CONGESTIVE [None]
  - HAEMATOCRIT DECREASED [None]
  - HAEMOGLOBIN DECREASED [None]
  - LYMPHOCYTE PERCENTAGE DECREASED [None]
  - NEUTROPHIL PERCENTAGE INCREASED [None]
  - OEDEMA [None]
  - PLEURAL EFFUSION [None]
  - RED BLOOD CELL COUNT DECREASED [None]
  - RED CELL DISTRIBUTION WIDTH INCREASED [None]
  - WHITE BLOOD CELL COUNT INCREASED [None]
